FAERS Safety Report 20887125 (Version 1)
Quarter: 2022Q2

REPORT INFORMATION
  Report Type: Spontaneous
  Country: US (occurrence: US)
  Receive Date: 20220528
  Receipt Date: 20220528
  Transmission Date: 20220721
  Serious: No
  Sender: FDA-Public Use
  Company Number: US-BRISTOL-MYERS SQUIBB COMPANY-2022-042738

PATIENT
  Age: 84 Year
  Sex: Female
  Weight: 72.12 kg

DRUGS (1)
  1. REVLIMID [Suspect]
     Active Substance: LENALIDOMIDE
     Indication: Plasma cell myeloma
     Dosage: FREQ-DAILY FOR 2 WEEKS ON,1 WEEK OFF.
     Route: 048
     Dates: start: 202110

REACTIONS (1)
  - Depression [Not Recovered/Not Resolved]
